FAERS Safety Report 18039656 (Version 4)
Quarter: 2021Q3

REPORT INFORMATION
  Report Type: Spontaneous
  Country: US (occurrence: US)
  Receive Date: 20200717
  Receipt Date: 20210701
  Transmission Date: 20211014
  Serious: Yes (Hospitalization, Other)
  Sender: FDA-Public Use
  Company Number: US-GILEAD-2020-0483539

PATIENT
  Age: 61 Year
  Sex: Male
  Weight: 72.56 kg

DRUGS (28)
  1. ASPIRIN [ACETYLSALICYLIC ACID] [Concomitant]
     Active Substance: ASPIRIN
  2. DEXAMETHASONE. [Concomitant]
     Active Substance: DEXAMETHASONE
  3. FLUCONAZOLE. [Concomitant]
     Active Substance: FLUCONAZOLE
  4. ACYCLOVIR [ACICLOVIR] [Concomitant]
     Active Substance: ACYCLOVIR
  5. DOCUSATE [Concomitant]
     Active Substance: DOCUSATE
  6. COTRIMOXAZOLE [Concomitant]
     Active Substance: SULFAMETHOXAZOLE\TRIMETHOPRIM
  7. DRONABINOL. [Concomitant]
     Active Substance: DRONABINOL
  8. IRON [Concomitant]
     Active Substance: IRON
  9. CELEBREX [Concomitant]
     Active Substance: CELECOXIB
  10. AMBIEN [Concomitant]
     Active Substance: ZOLPIDEM TARTRATE
  11. ATRIPLA [Suspect]
     Active Substance: EFAVIRENZ\EMTRICITABINE\TENOFOVIR DISOPROXIL FUMARATE
     Indication: HIV INFECTION
     Dosage: UNK
     Route: 048
     Dates: start: 2006, end: 2011
  12. LENALIDOMIDE [Concomitant]
     Active Substance: LENALIDOMIDE
  13. METOCLOPRAMIDE. [Concomitant]
     Active Substance: METOCLOPRAMIDE
  14. COMPLERA [Suspect]
     Active Substance: EMTRICITABINE\RILPIVIRINE HYDROCHLORIDE\TENOFOVIR DISOPROXIL FUMARATE
     Indication: HIV INFECTION
     Dosage: UNK
     Route: 048
     Dates: start: 2011, end: 201404
  15. PREDNISONE. [Concomitant]
     Active Substance: PREDNISONE
  16. LORAZEPAM. [Concomitant]
     Active Substance: LORAZEPAM
  17. LEVOFLOXACIN. [Concomitant]
     Active Substance: LEVOFLOXACIN
  18. HYDROMORPHONE HCL [Concomitant]
     Active Substance: HYDROMORPHONE HYDROCHLORIDE
  19. ODEFSEY [Concomitant]
     Active Substance: EMTRICITABINE\RILPIVIRINE HYDROCHLORIDE\TENOFOVIR ALAFENAMIDE FUMARATE
  20. ACETAMINOPHEN. [Concomitant]
     Active Substance: ACETAMINOPHEN
  21. ALBUTEROL [SALBUTAMOL] [Concomitant]
     Active Substance: ALBUTEROL
  22. COMPLERA [Suspect]
     Active Substance: EMTRICITABINE\RILPIVIRINE HYDROCHLORIDE\TENOFOVIR DISOPROXIL FUMARATE
     Dosage: UNK
     Route: 065
     Dates: start: 2011, end: 201811
  23. ONDANSETRON [Concomitant]
     Active Substance: ONDANSETRON
  24. AZITHROMYCIN ANHYDROUS. [Concomitant]
     Active Substance: AZITHROMYCIN ANHYDROUS
  25. OXYCODONE [Concomitant]
     Active Substance: OXYCODONE
  26. NALOXONE HCL [Concomitant]
     Active Substance: NALOXONE HYDROCHLORIDE
  27. OLANZAPINE. [Concomitant]
     Active Substance: OLANZAPINE
  28. VITAMINS NOS [Concomitant]
     Active Substance: VITAMINS

REACTIONS (8)
  - Chronic kidney disease [Not Recovered/Not Resolved]
  - Joint debridement [Unknown]
  - Fracture [Unknown]
  - Emotional distress [Unknown]
  - Hip arthroplasty [Unknown]
  - Osteoporosis [Not Recovered/Not Resolved]
  - Aspiration joint [Unknown]
  - Pain [Unknown]

NARRATIVE: CASE EVENT DATE: 201402
